FAERS Safety Report 7733619-0 (Version None)
Quarter: 2011Q3

REPORT INFORMATION
  Report Type: 
  Country: None (occurrence: None)
  Receive Date: 20110907
  Receipt Date: 20110829
  Transmission Date: 20111222
  Serious: Yes (Death, Other)
  Sender: FDA-Public Use
  Company Number: US-BRISTOL-MYERS SQUIBB COMPANY-16012940

PATIENT
  Age: 72 Year
  Sex: Female

DRUGS (9)
  1. CAMPATH [Suspect]
     Indication: PERIPHERAL T-CELL LYMPHOMA UNSPECIFIED STAGE III
     Dosage: 1DF=3MG,10MG AND 30 MG CONSECUTIVE DOSES RESPECTIVELY
     Route: 042
  2. CARMUSTINE [Suspect]
     Indication: PERIPHERAL T-CELL LYMPHOMA UNSPECIFIED STAGE III
  3. CYCLOPHOSPHAMIDE [Suspect]
     Indication: PERIPHERAL T-CELL LYMPHOMA UNSPECIFIED STAGE III
     Dosage: INFUSION INTIAL 6 DOSES
  4. DOXORUBICIN HCL [Suspect]
     Indication: PERIPHERAL T-CELL LYMPHOMA UNSPECIFIED STAGE III
     Dosage: INFUSION INTIAL 6 DOSES
  5. MELPHALAN HYDROCHLORIDE [Suspect]
     Indication: PERIPHERAL T-CELL LYMPHOMA UNSPECIFIED STAGE III
  6. VINCRISTINE [Suspect]
     Indication: PERIPHERAL T-CELL LYMPHOMA UNSPECIFIED STAGE III
     Dosage: INFUSION INTIAL 6 DOSES
  7. CYTARABINE [Suspect]
     Indication: PERIPHERAL T-CELL LYMPHOMA UNSPECIFIED STAGE III
  8. PREDNISONE [Suspect]
     Indication: PERIPHERAL T-CELL LYMPHOMA UNSPECIFIED STAGE III
     Dosage: INFUSION INTIAL 6 DOSES
  9. ETOPOSIDE [Suspect]
     Indication: PERIPHERAL T-CELL LYMPHOMA UNSPECIFIED STAGE III
     Dosage: INFUSION

REACTIONS (12)
  - FEBRILE NEUTROPENIA [None]
  - BK VIRUS INFECTION [None]
  - FATIGUE [None]
  - DEHYDRATION [None]
  - CLOSTRIDIUM DIFFICILE COLITIS [None]
  - CYSTITIS HAEMORRHAGIC [None]
  - GASTROENTERITIS ADENOVIRUS [None]
  - MULTI-ORGAN FAILURE [None]
  - CYTOMEGALOVIRUS VIRAEMIA [None]
  - MUCOSAL INFLAMMATION [None]
  - PARAINFLUENZAE VIRUS INFECTION [None]
  - PANCYTOPENIA [None]
